FAERS Safety Report 11916118 (Version 2)
Quarter: 2016Q1

REPORT INFORMATION
  Report Type: Spontaneous
  Country: US (occurrence: US)
  Receive Date: 20160114
  Receipt Date: 20160201
  Transmission Date: 20160526
  Serious: Yes (Death)
  Sender: FDA-Public Use
  Company Number: US-MALLINCKRODT-T201600063

PATIENT
  Sex: Female

DRUGS (2)
  1. INOMAX [Suspect]
     Active Substance: NITRIC OXIDE
     Indication: PULMONARY EMBOLISM
  2. INOMAX [Suspect]
     Active Substance: NITRIC OXIDE
     Indication: GENERAL PHYSICAL HEALTH DETERIORATION
     Dosage: 40 PPM, CONTINUOUS

REACTIONS (3)
  - Cardio-respiratory arrest [Fatal]
  - Off label use [Unknown]
  - Drug ineffective for unapproved indication [Unknown]
